FAERS Safety Report 11676991 (Version 1)
Quarter: 2015Q4

REPORT INFORMATION
  Report Type: Spontaneous
  Country: US (occurrence: US)
  Receive Date: 20151027
  Receipt Date: 20151027
  Transmission Date: 20160304
  Serious: No
  Sender: FDA-Public Use
  Company Number: US-ELI_LILLY_AND_COMPANY-US201010001032

PATIENT
  Sex: Female

DRUGS (2)
  1. SUNSCREEN [Concomitant]
     Active Substance: HOMOSALATE\OCTINOXATE\OCTISALATE\OXYBENZONE\TITANIUM DIOXIDE
  2. FORTEO [Suspect]
     Active Substance: TERIPARATIDE
     Indication: OSTEOPOROSIS
     Dosage: 20 UG, DAILY (1/D)
     Dates: start: 20100326, end: 20100905

REACTIONS (11)
  - Pinguecula [Recovering/Resolving]
  - Eye irritation [Recovering/Resolving]
  - Skin disorder [Recovering/Resolving]
  - Pain in extremity [Recovering/Resolving]
  - Eye pain [Recovering/Resolving]
  - Hair colour changes [Recovering/Resolving]
  - Ocular hyperaemia [Recovering/Resolving]
  - Dry eye [Recovering/Resolving]
  - Ocular icterus [Recovering/Resolving]
  - Nodule [Recovering/Resolving]
  - Adverse event [Recovering/Resolving]
